FAERS Safety Report 11924492 (Version 3)
Quarter: 2016Q1

REPORT INFORMATION
  Report Type: Report from Study
  Country: US (occurrence: US)
  Receive Date: 20160118
  Receipt Date: 20160209
  Transmission Date: 20160526
  Serious: Yes (Death, Hospitalization)
  Sender: FDA-Public Use
  Company Number: US-ACTELION-A-US2015-128192

PATIENT
  Age: 49 Year
  Sex: Female

DRUGS (3)
  1. MACITENTAN [Suspect]
     Active Substance: MACITENTAN
     Indication: PULMONARY ARTERIAL HYPERTENSION
     Dosage: 10 MG, QD
     Route: 048
     Dates: start: 20150820, end: 20160119
  2. REMODULIN [Concomitant]
     Active Substance: TREPROSTINIL
     Dosage: 10 NG/KG, PER MIN
     Route: 065
     Dates: start: 20151130
  3. DILTIAZEM [Concomitant]
     Active Substance: DILTIAZEM

REACTIONS (8)
  - Catheterisation cardiac [Unknown]
  - Right ventricular failure [Unknown]
  - Disease progression [Fatal]
  - Dyspnoea [Unknown]
  - Pulmonary arterial hypertension [Fatal]
  - Diabetic ketoacidosis [Unknown]
  - Unresponsive to stimuli [Unknown]
  - Loss of consciousness [Unknown]
